FAERS Safety Report 14198002 (Version 1)
Quarter: 2017Q4

REPORT INFORMATION
  Report Type: Spontaneous
  Country: US (occurrence: None)
  Receive Date: 20171116
  Receipt Date: 20171116
  Transmission Date: 20180321
  Serious: Yes (Hospitalization, Disabling)
  Sender: FDA-Public Use
  Company Number: None

PATIENT
  Sex: Female
  Weight: 56.7 kg

DRUGS (1)
  1. BUPIVACAINE, 0.5 % [Suspect]
     Active Substance: BUPIVACAINE
     Indication: POSTOPERATIVE ANALGESIA
     Dosage: 5 CC CONTINOUS GIVEN INTO/UNDER THE SKIN

REACTIONS (5)
  - Complex regional pain syndrome [None]
  - Injection site infection [None]
  - Acute hepatic failure [None]
  - Injection site swelling [None]
  - Drug hypersensitivity [None]

NARRATIVE: CASE EVENT DATE: 20070125
